FAERS Safety Report 7968668-0 (Version None)
Quarter: 2011Q4

REPORT INFORMATION
  Report Type: 
  Country: None (occurrence: None)
  Receive Date: 20111209
  Receipt Date: 20111205
  Transmission Date: 20120403
  Serious: Yes (Hospitalization)
  Sender: FDA-Public Use
  Company Number: SG-GLAXOSMITHKLINE-B0730232C

PATIENT
  Sex: Female

DRUGS (5)
  1. LAPATINIB [Suspect]
     Indication: BREAST CANCER
     Dosage: 750MG PER DAY
     Route: 048
     Dates: start: 20110620, end: 20110801
  2. PACLITAXEL [Suspect]
     Indication: BREAST CANCER
     Dosage: 140MG WEEKLY
     Route: 042
     Dates: start: 20110620, end: 20110725
  3. CYCLOPHOSPHAMIDE [Suspect]
     Indication: BREAST CANCER
     Dosage: 930MG EVERY 3 WEEKS
     Dates: start: 20111010
  4. CARBOPLATIN [Suspect]
     Indication: BREAST CANCER
     Dosage: 220MG CYCLIC
     Route: 042
     Dates: start: 20110620, end: 20110725
  5. DOXORUBICIN HCL [Suspect]
     Indication: BREAST CANCER
     Dosage: 95MG EVERY 3 WEEKS
     Route: 042
     Dates: start: 20111010

REACTIONS (1)
  - FEBRILE NEUTROPENIA [None]
